FAERS Safety Report 4349831-7 (Version None)
Quarter: 2004Q2

REPORT INFORMATION
  Report Type: 
  Country: None (occurrence: None)
  Receive Date: 20040426
  Receipt Date: 20040421
  Transmission Date: 20050107
  Serious: Yes (Disabling, Other)
  Sender: FDA-Public Use
  Company Number: 2003-07-3058

PATIENT
  Age: 41 Year
  Sex: Male
  Weight: 132.9039 kg

DRUGS (2)
  1. PEG-INTRON [Suspect]
     Indication: HEPATITIS C
     Dosage: 150 MCG QW SUBCUTANEOUS
     Route: 058
     Dates: start: 20010817, end: 20020409
  2. REBETOL [Suspect]
     Indication: HEPATITIS C
     Dosage: 1200 MG QD ORAL
     Route: 048
     Dates: start: 20010817, end: 20020409

REACTIONS (21)
  - ABDOMINAL PAIN UPPER [None]
  - ALOPECIA [None]
  - AMNESIA [None]
  - ANXIETY [None]
  - ARTHRALGIA [None]
  - C-REACTIVE PROTEIN INCREASED [None]
  - CHOLECYSTECTOMY [None]
  - DEPRESSION [None]
  - DRY MOUTH [None]
  - DYSPHEMIA [None]
  - DYSPNOEA [None]
  - INSOMNIA [None]
  - JOINT SWELLING [None]
  - MADAROSIS [None]
  - MYALGIA [None]
  - OEDEMA PERIPHERAL [None]
  - PAIN IN EXTREMITY [None]
  - PYREXIA [None]
  - SOMATISATION DISORDER [None]
  - VISUAL DISTURBANCE [None]
  - WHITE BLOOD CELL COUNT DECREASED [None]
